FAERS Safety Report 8761690 (Version 1)
Quarter: 2012Q4

REPORT INFORMATION
  Report Type: Spontaneous
  Country: US (occurrence: None)
  Receive Date: 20120830
  Receipt Date: 20120830
  Transmission Date: 20130627
  Serious: Yes (Death)
  Sender: FDA-Public Use
  Company Number: None

PATIENT
  Age: 82 Year
  Sex: Male
  Weight: 63.5 kg

DRUGS (8)
  1. BYETTA [Suspect]
     Indication: DIABETES
     Route: 030
     Dates: start: 20101123, end: 20111003
  2. METFORMIN [Concomitant]
  3. LIPITOR [Concomitant]
  4. AVODART [Concomitant]
  5. WARFARIN [Concomitant]
  6. ADVAIR [Concomitant]
  7. TRAVATIN [Concomitant]
  8. ISTALOL [Concomitant]

REACTIONS (1)
  - Pancreatic carcinoma [None]
